FAERS Safety Report 4456863-7 (Version None)
Quarter: 2004Q3

REPORT INFORMATION
  Report Type: 
  Country: None (occurrence: None)
  Receive Date: 20040921
  Receipt Date: 20040908
  Transmission Date: 20050211
  Serious: Yes (Hospitalization)
  Sender: FDA-Public Use
  Company Number: 191032

PATIENT
  Age: 58 Year
  Sex: Female
  Weight: 135 kg

DRUGS (9)
  1. AVONEX [Suspect]
     Indication: MULTIPLE SCLEROSIS
     Dosage: 30 MCG QW IM
     Route: 030
     Dates: start: 20020101, end: 20030801
  2. AVONEX [Suspect]
     Indication: MULTIPLE SCLEROSIS
     Dosage: 30 MCG QW IM
     Route: 030
     Dates: start: 20030801
  3. BACLOFEN [Concomitant]
  4. OXYCONTIN [Concomitant]
  5. CLONAZEPAM [Concomitant]
  6. NEURONTIN [Concomitant]
  7. ZANAFLEX [Concomitant]
  8. OXYBUTYNIN [Concomitant]
  9. NORTRIPTYLINE HCL [Concomitant]

REACTIONS (6)
  - COMA [None]
  - FEMUR FRACTURE [None]
  - INJECTION SITE HAEMORRHAGE [None]
  - INJECTION SITE PAIN [None]
  - INJURY [None]
  - URINARY TRACT INFECTION [None]
